FAERS Safety Report 7759028-6 (Version None)
Quarter: 2011Q3

REPORT INFORMATION
  Report Type: 
  Country: None (occurrence: None)
  Receive Date: 20110919
  Receipt Date: 20110914
  Transmission Date: 20111222
  Serious: Yes (Congenital Anomaly, Other)
  Sender: FDA-Public Use
  Company Number: US-BRISTOL-MYERS SQUIBB COMPANY-16068926

PATIENT
  Age: 1 Day
  Sex: Female
  Weight: 4 kg

DRUGS (8)
  1. ORENCIA [Suspect]
     Dosage: MOST RECENT ON 08DEC2010.
     Route: 064
     Dates: start: 20101201
  2. TRAMADOL HCL [Concomitant]
     Indication: PAIN
  3. LORAZEPAM [Concomitant]
     Indication: SLEEP DISORDER
  4. LISINOPRIL [Concomitant]
  5. SKELAXIN [Concomitant]
     Indication: PAIN
  6. OXAPROZIN [Concomitant]
  7. VICODIN [Concomitant]
     Indication: PAIN
  8. INSULIN [Concomitant]
     Dosage: INSULIN PUMP

REACTIONS (1)
  - CONGENITAL AORTIC ANOMALY [None]
